FAERS Safety Report 4983312-2 (Version None)
Quarter: 2006Q2

REPORT INFORMATION
  Report Type: 
  Country: None (occurrence: None)
  Receive Date: 20060426
  Receipt Date: 20050729
  Transmission Date: 20061013
  Serious: Yes (Death, Hospitalization, Other)
  Sender: FDA-Public Use
  Company Number: US-MERCK-0508USA00343

PATIENT
  Age: 81 Year
  Sex: Female
  Weight: 71 kg

DRUGS (4)
  1. VIOXX [Suspect]
     Indication: NEUROPATHY PERIPHERAL
     Route: 048
     Dates: start: 20010112, end: 20010529
  2. VIOXX [Suspect]
     Route: 048
     Dates: start: 20010530, end: 20010601
  3. VIOXX [Suspect]
     Indication: POLYARTHRITIS
     Route: 048
     Dates: start: 20010112, end: 20010529
  4. VIOXX [Suspect]
     Route: 048
     Dates: start: 20010530, end: 20010601

REACTIONS (19)
  - ANAEMIA OF CHRONIC DISEASE [None]
  - ANOREXIA [None]
  - CARDIO-RESPIRATORY ARREST [None]
  - CEREBROVASCULAR ACCIDENT [None]
  - COLLAGEN-VASCULAR DISEASE [None]
  - FALL [None]
  - FOOT FRACTURE [None]
  - HEMIPARESIS [None]
  - HYPERTENSION [None]
  - INJURY [None]
  - LIVER FUNCTION TEST ABNORMAL [None]
  - LOWER LIMB FRACTURE [None]
  - MYOCARDIAL INFARCTION [None]
  - NEPHRITIS INTERSTITIAL [None]
  - NEUROLOGICAL SYMPTOM [None]
  - PULMONARY OEDEMA [None]
  - RENAL FAILURE ACUTE [None]
  - URINARY TRACT INFECTION [None]
  - VASCULITIS [None]
